FAERS Safety Report 5613384-3 (Version None)
Quarter: 2008Q1

REPORT INFORMATION
  Report Type: 
  Country: None (occurrence: None)
  Receive Date: 20080129
  Receipt Date: 20071205
  Transmission Date: 20080703
  Serious: Yes (Hospitalization)
  Sender: FDA-Public Use
  Company Number: DE-JNJFOC-20070700140

PATIENT
  Age: 70 Year
  Sex: Male
  Weight: 88 kg

DRUGS (2)
  1. DECITABINE (DECITABINE) LYOPHILIZED POWDER [Suspect]
     Indication: MYELODYSPLASTIC SYNDROME
     Dosage: 15 MG/M2, IN 8 HOUR, INTRAVENOUS
     Route: 042
     Dates: start: 20050118, end: 20050121
  2. DEXAMETHASONE [Concomitant]

REACTIONS (4)
  - ARTHRITIS INFECTIVE [None]
  - ATRIAL FIBRILLATION [None]
  - PYREXIA [None]
  - TACHYCARDIA [None]
